FAERS Safety Report 4832787-8 (Version None)
Quarter: 2005Q4

REPORT INFORMATION
  Report Type: 
  Country: None (occurrence: None)
  Receive Date: 20051117
  Receipt Date: 20051107
  Transmission Date: 20060501
  Serious: Yes (Life-Threatening, Hospitalization, Other)
  Sender: FDA-Public Use
  Company Number: US_0511123635

PATIENT
  Age: 14 Year
  Sex: Male
  Weight: 64 kg

DRUGS (1)
  1. STRATTERA [Suspect]
     Indication: ATTENTION DEFICIT/HYPERACTIVITY DISORDER
     Dates: start: 20030415, end: 20030506

REACTIONS (4)
  - ANGER [None]
  - DEPRESSION [None]
  - MOOD ALTERED [None]
  - SUICIDE ATTEMPT [None]
